FAERS Safety Report 21944913 (Version 2)
Quarter: 2023Q1

REPORT INFORMATION
  Report Type: Report from Study
  Country: IT (occurrence: IT)
  Receive Date: 20230202
  Receipt Date: 20230206
  Transmission Date: 20230417
  Serious: Yes (Other)
  Sender: FDA-Public Use
  Company Number: None

PATIENT

DRUGS (1)
  1. DICLOFENAC [Suspect]
     Active Substance: DICLOFENAC
     Indication: Product used for unknown indication
     Dosage: UNK (DOSAGE: 1 UNIT OF MEASURE: DOSING UNIT FREQUENCY OF ADMINISTRATION: TOTAL)
     Route: 048
     Dates: start: 20220302, end: 20220302

REACTIONS (4)
  - Conjunctival hyperaemia [Recovering/Resolving]
  - Pruritus [Recovering/Resolving]
  - Erythema [Recovering/Resolving]
  - Hypersensitivity [Recovering/Resolving]

NARRATIVE: CASE EVENT DATE: 20220302
